FAERS Safety Report 6077312-1 (Version None)
Quarter: 2009Q1

REPORT INFORMATION
  Report Type: 
  Country: None (occurrence: None)
  Receive Date: 20090213
  Receipt Date: 20090206
  Transmission Date: 20090719
  Serious: Yes (Other)
  Sender: FDA-Public Use
  Company Number: B0536163A

PATIENT
  Age: 29 Year
  Sex: Female

DRUGS (3)
  1. LAMICTAL [Suspect]
     Indication: EPILEPSY
     Route: 048
     Dates: start: 20040101
  2. RIVOTRIL [Concomitant]
     Indication: EPILEPSY
     Dosage: 8DROP PER DAY
     Route: 048
  3. DIAZEPAM [Concomitant]
     Route: 065

REACTIONS (4)
  - DRUG EXPOSURE DURING PREGNANCY [None]
  - LIVE BIRTH [None]
  - OVERDOSE [None]
  - PARTIAL SEIZURES [None]
